FAERS Safety Report 4540874-7 (Version None)
Quarter: 2004Q4

REPORT INFORMATION
  Report Type: 
  Country: None (occurrence: None)
  Receive Date: 20041229
  Receipt Date: 20041216
  Transmission Date: 20050328
  Serious: Yes (Other)
  Sender: FDA-Public Use
  Company Number: US-AMGEN-US103864

PATIENT

DRUGS (1)
  1. NEUPOGEN [Suspect]
     Indication: PERIPHERAL BLOOD STEM CELL APHERESIS
     Route: 058

REACTIONS (5)
  - BLOOD HIV RNA INCREASED [None]
  - CONDITION AGGRAVATED [None]
  - HERPES VIRUS INFECTION [None]
  - IMMUNOSUPPRESSION [None]
  - VIRAEMIA [None]
